FAERS Safety Report 16815962 (Version 1)
Quarter: 2019Q3

REPORT INFORMATION
  Report Type: Spontaneous
  Country: SE (occurrence: SE)
  Receive Date: 20190917
  Receipt Date: 20190917
  Transmission Date: 20191005
  Serious: Yes (Hospitalization)
  Sender: FDA-Public Use
  Company Number: SE-TEVA-2019-SE-1107213

PATIENT
  Sex: Female

DRUGS (3)
  1. ALIMEMAZINE [Suspect]
     Active Substance: TRIMEPRAZINE
     Dosage: 120MG
     Route: 048
     Dates: start: 20190513, end: 20190513
  2. OLANZAPINE. [Suspect]
     Active Substance: OLANZAPINE
     Dosage: 300 MG
     Route: 048
     Dates: start: 20190513, end: 20190513
  3. LERGIGAN (PROMETHAZINE HYDROCHLORIDE) [Suspect]
     Active Substance: PROMETHAZINE HYDROCHLORIDE
     Dosage: 1250MG
     Route: 048
     Dates: start: 20190513, end: 20190513

REACTIONS (3)
  - Intentional overdose [Unknown]
  - Intentional self-injury [Unknown]
  - Somnolence [Unknown]

NARRATIVE: CASE EVENT DATE: 20190513
